FAERS Safety Report 21141576 (Version 1)
Quarter: 2022Q3

REPORT INFORMATION
  Report Type: Spontaneous
  Country: US (occurrence: None)
  Receive Date: 20220727
  Receipt Date: 20220727
  Transmission Date: 20221027
  Serious: No
  Sender: FDA-Public Use
  Company Number: None

PATIENT
  Age: 53 Year
  Sex: Male
  Weight: 72 kg

DRUGS (4)
  1. CITROMA [Suspect]
     Active Substance: MAGNESIUM CITRATE
     Indication: Colonoscopy
     Dosage: OTHER QUANTITY : 10 OUNCE(S);?OTHER FREQUENCY : ONCE;?
     Route: 048
     Dates: start: 20220726, end: 20220726
  2. TIMOLOL [Concomitant]
     Active Substance: TIMOLOL
  3. BRIMODINE [Concomitant]
  4. ELETRIPTAN [Concomitant]
     Active Substance: ELETRIPTAN

REACTIONS (4)
  - Rhinorrhoea [None]
  - Nasal congestion [None]
  - Sneezing [None]
  - Eye pruritus [None]

NARRATIVE: CASE EVENT DATE: 20220726
